FAERS Safety Report 6088247-2 (Version None)
Quarter: 2009Q1

REPORT INFORMATION
  Report Type: 
  Country: None (occurrence: None)
  Receive Date: 20090224
  Receipt Date: 20090218
  Transmission Date: 20090719
  Serious: Yes (Hospitalization, Other)
  Sender: FDA-Public Use
  Company Number: JP-JNJFOC-20081203737

PATIENT
  Sex: Female
  Weight: 55 kg

DRUGS (16)
  1. DUROTEP MT PATCH [Suspect]
     Route: 062
  2. DUROTEP MT PATCH [Suspect]
     Route: 062
  3. DUROTEP MT PATCH [Suspect]
     Route: 062
  4. DUROTEP MT PATCH [Suspect]
     Indication: ADENOCARCINOMA
     Route: 062
  5. MORPHINE SULFATE HYDRATE [Suspect]
     Indication: DRUG USE FOR UNKNOWN INDICATION
     Route: 065
  6. MOBIC [Concomitant]
     Indication: LUMBAR SPINAL STENOSIS
     Route: 048
  7. OPALMON [Concomitant]
     Indication: LUMBAR SPINAL STENOSIS
     Route: 048
  8. AMOXAN [Concomitant]
     Indication: DEPRESSION
     Route: 048
  9. SEDIEL [Concomitant]
     Indication: DEPRESSION
     Route: 048
  10. RIZE [Concomitant]
     Indication: DEPRESSION
     Route: 048
  11. PANTETHINE [Concomitant]
     Indication: DEPRESSION
     Route: 048
  12. FAMOTIDINE [Concomitant]
     Indication: DEPRESSION
     Route: 048
  13. ALOSENN [Concomitant]
     Indication: DEPRESSION
     Route: 048
  14. TAKEPRON [Concomitant]
     Indication: REFLUX OESOPHAGITIS
     Route: 048
  15. NOVAMIN [Concomitant]
     Indication: ADENOCARCINOMA
     Route: 048
  16. DEPAS [Concomitant]
     Indication: ADENOCARCINOMA
     Route: 048

REACTIONS (17)
  - ABDOMINAL DISCOMFORT [None]
  - ABDOMINAL PAIN LOWER [None]
  - ABDOMINAL PAIN UPPER [None]
  - ALTERED STATE OF CONSCIOUSNESS [None]
  - CHEST DISCOMFORT [None]
  - CONSTIPATION [None]
  - DEMENTIA [None]
  - DEPRESSION [None]
  - DISCOMFORT [None]
  - FEELING ABNORMAL [None]
  - HYPERHIDROSIS [None]
  - IRRITABILITY [None]
  - PAIN [None]
  - POLLAKIURIA [None]
  - RESTLESSNESS [None]
  - VOMITING [None]
  - WRONG TECHNIQUE IN DRUG USAGE PROCESS [None]
